FAERS Safety Report 19875196 (Version 3)
Quarter: 2021Q4

REPORT INFORMATION
  Report Type: Report from Study
  Country: CA (occurrence: CA)
  Receive Date: 20210923
  Receipt Date: 20211222
  Transmission Date: 20220303
  Serious: No
  Sender: FDA-Public Use
  Company Number: CA-TAKEDA-2021TUS058511

PATIENT
  Age: 11 Year
  Sex: Male

DRUGS (1)
  1. VEDOLIZUMAB [Suspect]
     Active Substance: VEDOLIZUMAB
     Indication: Colitis ulcerative
     Dosage: 300 MILLIGRAM
     Route: 042
     Dates: start: 20210714

REACTIONS (2)
  - BK virus infection [Unknown]
  - Product use issue [Unknown]

NARRATIVE: CASE EVENT DATE: 20210714
